FAERS Safety Report 9042642 (Version 1)
Quarter: 2013Q1

REPORT INFORMATION
  Report Type: Report from Study
  Country: US (occurrence: US)
  Receive Date: 20130129
  Receipt Date: 20130129
  Transmission Date: 20140127
  Serious: No
  Sender: FDA-Public Use
  Company Number: US-ABBOTT-12P-163-0904987-00

PATIENT
  Age: 56 Year
  Sex: Female
  Weight: 66.74 kg

DRUGS (10)
  1. HUMIRA 40 MG/0.8 ML PEN [Suspect]
     Indication: CROHN^S DISEASE
     Dates: start: 20120102
  2. NEFEDIPINE [Concomitant]
     Indication: HYPERTENSION
  3. MAGNESIUM OXIDE [Concomitant]
     Indication: MINERAL SUPPLEMENTATION
  4. FISH OIL [Concomitant]
     Indication: SUPPLEMENTATION THERAPY
  5. MULTIVITAMIN [Concomitant]
     Indication: VITAMIN SUPPLEMENTATION
  6. CALCIUM+VIT D [Concomitant]
     Indication: VITAMIN SUPPLEMENTATION
  7. VITAMIN D [Concomitant]
     Indication: VITAMIN SUPPLEMENTATION
  8. TYLENOL [Concomitant]
     Indication: PAIN
  9. FOSAMAX [Concomitant]
     Indication: OSTEOPOROSIS
  10. MELATONIN [Concomitant]
     Indication: INSOMNIA

REACTIONS (1)
  - Influenza like illness [Recovered/Resolved]
